FAERS Safety Report 5400309-9 (Version None)
Quarter: 2007Q3

REPORT INFORMATION
  Report Type: 
  Country: None (occurrence: None)
  Receive Date: 20070730
  Receipt Date: 20070723
  Transmission Date: 20080115
  Serious: Yes (Hospitalization)
  Sender: FDA-Public Use
  Company Number: IT-ROCHE-508308

PATIENT
  Age: 68 Year
  Sex: Female

DRUGS (5)
  1. TICLID [Suspect]
     Route: 048
     Dates: start: 20070601, end: 20070701
  2. RYTHMOL [Concomitant]
     Indication: DRUG USE FOR UNKNOWN INDICATION
     Dosage: GENERIC REPORTED AS PROPAFENONE HYDROCHLORIDE.
     Route: 048
  3. PANTORC [Concomitant]
     Indication: DRUG USE FOR UNKNOWN INDICATION
     Dosage: GENERIC REPORTED AS PANTOPRAZOLE SODIUM.
     Route: 048
  4. TOTALIP [Concomitant]
     Indication: DRUG USE FOR UNKNOWN INDICATION
     Dosage: GENERIC REPORTED AS ATORVASTATIN CALCIUM.
     Route: 048
  5. EN [Concomitant]
     Indication: DRUG USE FOR UNKNOWN INDICATION
     Route: 048

REACTIONS (4)
  - DIARRHOEA [None]
  - FEBRILE NEUTROPENIA [None]
  - PYREXIA [None]
  - THROMBOCYTOPENIA [None]
